FAERS Safety Report 9041498 (Version 1)
Quarter: 2013Q1

REPORT INFORMATION
  Report Type: Report from Study
  Country: US (occurrence: US)
  Receive Date: 20130129
  Receipt Date: 20130129
  Transmission Date: 20140127
  Serious: No
  Sender: FDA-Public Use
  Company Number: US-ABBOTT-12P-163-0901545-00

PATIENT
  Age: 22 Year
  Sex: Female

DRUGS (1)
  1. HUMIRA 40 MG/0.8 ML PEN [Suspect]
     Indication: CROHN^S DISEASE
     Dates: start: 20101110, end: 20110311

REACTIONS (4)
  - Pain [Not Recovered/Not Resolved]
  - Crohn^s disease [Unknown]
  - Bone pain [Unknown]
  - Impaired work ability [Unknown]
